FAERS Safety Report 16693270 (Version 4)
Quarter: 2019Q3

REPORT INFORMATION
  Report Type: Spontaneous
  Country: US (occurrence: US)
  Receive Date: 20190812
  Receipt Date: 20190923
  Transmission Date: 20191004
  Serious: Yes (Hospitalization, Other)
  Sender: FDA-Public Use
  Company Number: US-PFIZER INC-2019339849

PATIENT
  Age: 89 Year
  Sex: Female
  Weight: 64.4 kg

DRUGS (1)
  1. LATANOPROST. [Suspect]
     Active Substance: LATANOPROST
     Dosage: UNK

REACTIONS (4)
  - Insomnia [Unknown]
  - Volvulus [Unknown]
  - Toothache [Unknown]
  - Asthenia [Unknown]
